FAERS Safety Report 8805059 (Version 2)
Quarter: 2012Q4

REPORT INFORMATION
  Report Type: 
  Country: GR (occurrence: GR)
  Receive Date: 20120924
  Receipt Date: 20121001
  Transmission Date: 20130627
  Serious: Yes (Death, Hospitalization)
  Sender: FDA-Public Use
  Company Number: PHHY2012GR081511

PATIENT
  Age: 22 Month
  Sex: Female

DRUGS (10)
  1. METHYLPREDNISOLONE [Suspect]
     Indication: KAWASAKI^S DISEASE
     Dosage: 30 mg/kg, per 24 hours
  2. ACETYLSALICYLIC ACID [Concomitant]
     Indication: KAWASAKI^S DISEASE
     Dosage: 100 mg/kg, UNK
  3. ACETYLSALICYLIC ACID [Concomitant]
     Dosage: 100 mg/kg, UNK
  4. ACETYLSALICYLIC ACID [Concomitant]
     Dosage: 5 mg/kg, UNK
  5. ACETYLSALICYLIC ACID [Concomitant]
     Dosage: 5 mg/kg, UNK
  6. IMMUNOGLOBULINS [Concomitant]
     Route: 042
  7. REMICADE [Concomitant]
  8. PROPRANOLOL [Concomitant]
  9. RANITIDINE [Concomitant]
  10. IBUPROFEN [Concomitant]

REACTIONS (2)
  - Myocardial ischaemia [Fatal]
  - Drug ineffective [Unknown]
